FAERS Safety Report 4577752-3 (Version None)
Quarter: 2005Q1

REPORT INFORMATION
  Report Type: 
  Country: None (occurrence: None)
  Receive Date: 20050209
  Receipt Date: 20050126
  Transmission Date: 20050727
  Serious: Yes (Death, Hospitalization)
  Sender: FDA-Public Use
  Company Number: 2004AL000560

PATIENT
  Age: 62 Year
  Sex: Male

DRUGS (1)
  1. KADIAN [Suspect]
     Dosage: PO
     Route: 048

REACTIONS (19)
  - ALANINE AMINOTRANSFERASE INCREASED [None]
  - ASPARTATE AMINOTRANSFERASE INCREASED [None]
  - BLOOD CREATINE PHOSPHOKINASE INCREASED [None]
  - BLOOD CREATININE INCREASED [None]
  - BLOOD UREA INCREASED [None]
  - CONFUSIONAL STATE [None]
  - DIARRHOEA [None]
  - DRUG ABUSER [None]
  - DYSKINESIA [None]
  - HAEMATEMESIS [None]
  - HAEMATOCRIT DECREASED [None]
  - HAEMOGLOBIN DECREASED [None]
  - HEART RATE INCREASED [None]
  - HYPOTENSION [None]
  - KUSSMAUL RESPIRATION [None]
  - OVERDOSE [None]
  - PNEUMONIA [None]
  - TACHYPNOEA [None]
  - TREMOR [None]
